FAERS Safety Report 21365977 (Version 1)
Quarter: 2022Q3

REPORT INFORMATION
  Report Type: Report from Study
  Country: US (occurrence: US)
  Receive Date: 20220922
  Receipt Date: 20220922
  Transmission Date: 20221027
  Serious: Yes (Hospitalization)
  Sender: FDA-Public Use
  Company Number: US-BAYER-2022A128037

PATIENT
  Age: 78 Year
  Sex: Female

DRUGS (1)
  1. NEXAVAR [Suspect]
     Active Substance: SORAFENIB
     Dosage: UNK
     Dates: start: 202209

REACTIONS (6)
  - Heart rate increased [Unknown]
  - Rash [Unknown]
  - Swelling face [Unknown]
  - Ear haemorrhage [Unknown]
  - Diarrhoea [Not Recovered/Not Resolved]
  - Mouth haemorrhage [Unknown]
